FAERS Safety Report 8531155 (Version 9)
Quarter: 2013Q1

REPORT INFORMATION
  Report Type: Spontaneous
  Country: US (occurrence: None)
  Receive Date: 20120417
  Receipt Date: 20121022
  Transmission Date: 20140127
  Serious: Yes (Hospitalization, Disabling, Other)
  Sender: FDA-Public Use
  Company Number: JPI-P-020822

PATIENT
  Age: 60 Year
  Sex: Female
  Weight: 60.78 kg

DRUGS (23)
  1. XYREM [Suspect]
     Indication: INSOMNIA
     Dosage: (3 GM, 2 IN 1 D)
     Route: 048
     Dates: start: 20110726
  2. XYREM [Suspect]
     Indication: SLEEP DISORDER
     Dosage: (3 GM, 2 IN 1 D)
     Route: 048
     Dates: start: 20110726
  3. DIVALPROEX SODIUM [Suspect]
     Indication: AGORAPHOBIA
     Dosage: (3 GM,2 IN 1 D)
     Dates: start: 20120519
  4. ARTIFICAL TEARS [Concomitant]
  5. CLONAZEPAM [Concomitant]
  6. DESVENLAFAXINE SUCCINATE [Concomitant]
  7. HYDROCHLOROTHIAZIDE [Concomitant]
  8. SIMVASTATIN [Concomitant]
  9. PANTOPRAZOLE [Concomitant]
  10. GABAPENTIN [Concomitant]
  11. FISH OIL [Concomitant]
  12. ASPIRIN [Concomitant]
  13. NIACIN [Concomitant]
  14. RAMIPRIL [Concomitant]
  15. AYR SINUS RINSE KIT [Concomitant]
  16. CYCLOSPORINE (EYE DROPS) [Concomitant]
  17. ASCORBIC ACID [Concomitant]
  18. VITAMIN D [Concomitant]
  19. ACETYLSALICYLIC ACID [Concomitant]
  20. VITAMIN B COMPLEX [Concomitant]
  21. LACTOBACILLUS RHAMNOSUS [Concomitant]
  22. ZOLPIDEM TARTRATE [Concomitant]
  23. PROPRANOLOL [Concomitant]

REACTIONS (17)
  - Self injurious behaviour [None]
  - Depression [None]
  - Blood glucose increased [None]
  - Weight increased [None]
  - Panic disorder [None]
  - Palpitations [None]
  - Tremor [None]
  - Hyperventilation [None]
  - Blood cholesterol increased [None]
  - Blood pressure increased [None]
  - Liver disorder [None]
  - Suicidal ideation [None]
  - Agoraphobia [None]
  - Hypophagia [None]
  - Activities of daily living impaired [None]
  - Fall [None]
  - Head injury [None]
